FAERS Safety Report 8808872 (Version 1)
Quarter: 2012Q4

REPORT INFORMATION
  Report Type: 
  Country: MX (occurrence: MX)
  Receive Date: 20120926
  Receipt Date: 20120926
  Transmission Date: 20130627
  Serious: Yes (Other)
  Sender: FDA-Public Use
  Company Number: PHHY2012MX082713

PATIENT
  Sex: Female

DRUGS (2)
  1. DIOVAN [Suspect]
     Indication: HYPERTENSION
     Dosage: 1 DF, per day
     Route: 048
     Dates: start: 200901
  2. NORVAS [Suspect]
     Indication: HYPERTENSION
     Dosage: 1.5 DF, per day
     Route: 048
     Dates: start: 201001

REACTIONS (4)
  - Cataract [Not Recovered/Not Resolved]
  - Foreign body in eye [Not Recovered/Not Resolved]
  - Eye pain [Not Recovered/Not Resolved]
  - Head discomfort [Not Recovered/Not Resolved]
